FAERS Safety Report 25387511 (Version 1)
Quarter: 2025Q2

REPORT INFORMATION
  Report Type: Report from Study
  Country: US (occurrence: US)
  Receive Date: 20250602
  Receipt Date: 20250602
  Transmission Date: 20250717
  Serious: Yes (Other)
  Sender: NOVARTIS
  Company Number: US-002147023-NVSC2025US066227

PATIENT
  Age: 48 Year
  Sex: Female
  Weight: 57.7 kg

DRUGS (6)
  1. LAMPRENE [Suspect]
     Active Substance: CLOFAZIMINE
     Indication: Mycobacterium abscessus infection
     Dosage: 100 MG, QD (ONCE DAILY)
     Route: 048
     Dates: start: 20241205, end: 20250321
  2. LAMPRENE [Suspect]
     Active Substance: CLOFAZIMINE
     Dosage: 100 MG, QD (DAILY)
     Route: 048
     Dates: start: 20250324, end: 20250411
  3. LINEZOLID [Suspect]
     Active Substance: LINEZOLID
     Indication: Mycobacterium abscessus infection
     Dosage: 600 MG, QD
     Route: 048
     Dates: start: 20241205, end: 20250319
  4. AMIKACIN [Concomitant]
     Active Substance: AMIKACIN
     Indication: Mycobacterium abscessus infection
     Dosage: VARIED ACCORDING TO PEAK LEVELS 750 - 930 MG, QD
     Route: 042
     Dates: start: 20241205, end: 20250321
  5. AMIKACIN [Concomitant]
     Active Substance: AMIKACIN
     Dosage: VARIED ACCORDING TO PEAK LEVELS 750 - 930 MG, QD
     Route: 042
     Dates: start: 20250324, end: 20250411
  6. IMIPENEM [Concomitant]
     Active Substance: IMIPENEM
     Indication: Product used for unknown indication
     Route: 065
     Dates: start: 20241205, end: 20241213

REACTIONS (4)
  - Alanine aminotransferase increased [Recovering/Resolving]
  - Diverticulitis [Unknown]
  - Abdominal pain [Recovering/Resolving]
  - Colitis [Unknown]

NARRATIVE: CASE EVENT DATE: 20250314
